FAERS Safety Report 9700138 (Version 3)
Quarter: 2014Q1

REPORT INFORMATION
  Report Type: Spontaneous
  Country: US (occurrence: US)
  Receive Date: 20131121
  Receipt Date: 20140123
  Transmission Date: 20141002
  Serious: Yes (Other)
  Sender: FDA-Public Use
  Company Number: US-009507513-1311USA004793

PATIENT
  Sex: Female

DRUGS (1)
  1. PEGINTRON [Suspect]
     Dosage: 50 MICROGRAM, QW, REDIPEN

REACTIONS (8)
  - Surgery [Unknown]
  - Stress [Unknown]
  - Road traffic accident [Unknown]
  - Fatigue [Unknown]
  - Tooth disorder [Unknown]
  - Adverse event [Unknown]
  - Underdose [Unknown]
  - Wrong technique in drug usage process [Unknown]
